FAERS Safety Report 18591052 (Version 1)
Quarter: 2020Q4

REPORT INFORMATION
  Report Type: Spontaneous
  Country: GB (occurrence: GB)
  Receive Date: 20201208
  Receipt Date: 20201208
  Transmission Date: 20210114
  Serious: Yes (Other)
  Sender: FDA-Public Use
  Company Number: GB-BIOGEN-2020BI00953345

PATIENT
  Age: 58 Year
  Sex: Female

DRUGS (2)
  1. EXTAVIA [Suspect]
     Active Substance: INTERFERON BETA-1B
     Indication: RELAPSING-REMITTING MULTIPLE SCLEROSIS
     Dosage: UNK
     Route: 065
  2. TYSABRI [Suspect]
     Active Substance: NATALIZUMAB
     Indication: RELAPSING-REMITTING MULTIPLE SCLEROSIS
     Dosage: UNK, Q4W
     Route: 065

REACTIONS (5)
  - Bladder disorder [Not Recovered/Not Resolved]
  - Muscle spasms [Not Recovered/Not Resolved]
  - Central nervous system lesion [Unknown]
  - Disturbance in attention [Not Recovered/Not Resolved]
  - Secondary progressive multiple sclerosis [Unknown]
